FAERS Safety Report 17893856 (Version 1)
Quarter: 2020Q2

REPORT INFORMATION
  Report Type: Spontaneous
  Country: DE (occurrence: DE)
  Receive Date: 20200615
  Receipt Date: 20200615
  Transmission Date: 20200714
  Serious: Yes (Hospitalization)
  Sender: FDA-Public Use
  Company Number: DE-AUROBINDO-AUR-APL-2020-028708

PATIENT
  Sex: Female
  Weight: 88 kg

DRUGS (12)
  1. GLUCOSAMIN [Concomitant]
     Active Substance: GLUCOSAMINE
     Indication: ARTHRALGIA
     Dosage: 1200
     Route: 048
  2. BETNESOL V [Concomitant]
     Indication: SKIN DISORDER
     Dosage: 0.1 PERCENT, EVERY WEEK
     Route: 048
  3. VALSARTAN. [Concomitant]
     Active Substance: VALSARTAN
     Indication: HYPERTENSION
     Dosage: 1-0-1/2
     Route: 048
  4. JAKAVI [Suspect]
     Active Substance: RUXOLITINIB
     Dosage: 30 MILLIGRAM, DAILY (15 MG, BID)
     Route: 048
     Dates: start: 20190523
  5. MARCUMAR [Concomitant]
     Active Substance: PHENPROCOUMON
     Indication: ANTICOAGULANT THERAPY
     Dosage: 9 OT, UNK
     Route: 048
  6. ROSICED [Concomitant]
     Indication: SKIN DISORDER
     Dosage: 7.5 MILLIGRAM, ONCE A DAY
     Route: 048
  7. DULOXETINE. [Suspect]
     Active Substance: DULOXETINE
     Indication: PRODUCT USED FOR UNKNOWN INDICATION
     Dosage: 10 MILLIGRAM
     Route: 048
     Dates: start: 20190425, end: 20190502
  8. PRAMIPEXOL [Concomitant]
     Active Substance: PRAMIPEXOLE
     Indication: PARKINSON^S DISEASE
     Dosage: 0.18 MILLIGRAM, ONCE A DAY
     Route: 048
  9. DULOXALTA [Concomitant]
     Indication: PRODUCT USED FOR UNKNOWN INDICATION
     Dosage: UNK
     Route: 065
  10. JAKAVI [Suspect]
     Active Substance: RUXOLITINIB
     Indication: POLYCYTHAEMIA VERA
     Dosage: 30 MILLIGRAM, DAILY (15 MG, BID)
     Route: 048
     Dates: start: 20180704, end: 20180724
  11. JAKAVI [Suspect]
     Active Substance: RUXOLITINIB
     Dosage: 40 MILLIGRAM, DAILY (20 MG, BID)
     Route: 048
     Dates: start: 20180725, end: 20190522
  12. ACNATAC [Concomitant]
     Active Substance: CLINDAMYCIN PHOSPHATE\TRETINOIN
     Indication: SKIN DISORDER
     Dosage: 10 MILLIGRAM, ONCE A DAY
     Route: 065

REACTIONS (2)
  - Weight increased [Not Recovered/Not Resolved]
  - Dyspnoea exertional [Recovered/Resolved]

NARRATIVE: CASE EVENT DATE: 20190423
